FAERS Safety Report 21246522 (Version 1)
Quarter: 2022Q3

REPORT INFORMATION
  Report Type: Spontaneous
  Country: US (occurrence: US)
  Receive Date: 20220824
  Receipt Date: 20220824
  Transmission Date: 20221027
  Serious: Yes (Other)
  Sender: FDA-Public Use
  Company Number: US-SA-SAC20220819000139

PATIENT
  Age: 48 Year
  Sex: Male

DRUGS (1)
  1. ZANTAC [Suspect]
     Active Substance: RANITIDINE HYDROCHLORIDE
     Dosage: UNK, FREQ:OTHER
     Dates: start: 199201, end: 201909

REACTIONS (3)
  - Testis cancer [Unknown]
  - Prostate cancer [Unknown]
  - Polyp [Unknown]

NARRATIVE: CASE EVENT DATE: 19971010
